FAERS Safety Report 15452182 (Version 1)
Quarter: 2018Q4

REPORT INFORMATION
  Report Type: Spontaneous
  Country: DE (occurrence: DE)
  Receive Date: 20181001
  Receipt Date: 20181001
  Transmission Date: 20190204
  Serious: Yes (Other)
  Sender: FDA-Public Use
  Company Number: PHHY2018DE110042

PATIENT
  Sex: Female

DRUGS (12)
  1. EUTHYROX [Suspect]
     Active Substance: LEVOTHYROXINE SODIUM
     Dosage: 50 UG, UNK
     Route: 065
  2. EUTHYROX [Suspect]
     Active Substance: LEVOTHYROXINE SODIUM
     Dosage: 12 UG, UNK
     Route: 065
  3. EUTHYROX [Suspect]
     Active Substance: LEVOTHYROXINE SODIUM
     Indication: PRODUCT USED FOR UNKNOWN INDICATION
     Dosage: 44 UG, UNK
     Route: 065
  4. EUTHYROX [Suspect]
     Active Substance: LEVOTHYROXINE SODIUM
     Dosage: 75 UG, UNK
     Route: 065
  5. EUTHYROX [Suspect]
     Active Substance: LEVOTHYROXINE SODIUM
     Dosage: 15.5 UG, UNK
     Route: 065
  6. EUTHYROX [Suspect]
     Active Substance: LEVOTHYROXINE SODIUM
     Dosage: 56.25 UG, UNK
     Route: 065
  7. HEPARIN [Suspect]
     Active Substance: HEPARIN SODIUM
     Indication: PRODUCT USED FOR UNKNOWN INDICATION
     Dosage: UNK
     Route: 065
  8. EUTHYROX [Suspect]
     Active Substance: LEVOTHYROXINE SODIUM
     Dosage: 9.88 UG, UNK
     Route: 065
  9. EUTHYROX [Suspect]
     Active Substance: LEVOTHYROXINE SODIUM
     Dosage: 88 UG, UNK
     Route: 065
  10. EUTHYROX [Suspect]
     Active Substance: LEVOTHYROXINE SODIUM
     Dosage: 9 UG, UNK
     Route: 065
  11. EUTHYROX [Suspect]
     Active Substance: LEVOTHYROXINE SODIUM
     Dosage: 6 UG, UNK
     Route: 065
  12. EUTHYROX [Suspect]
     Active Substance: LEVOTHYROXINE SODIUM
     Dosage: 18.5 UG, UNK
     Route: 065

REACTIONS (24)
  - Fall [Unknown]
  - Heart rate increased [Recovering/Resolving]
  - Tremor [Unknown]
  - Sleep disorder [Not Recovered/Not Resolved]
  - Nervous system disorder [Recovering/Resolving]
  - Heparin-induced thrombocytopenia [Unknown]
  - Confusional state [Unknown]
  - Skin induration [Unknown]
  - Night sweats [Not Recovered/Not Resolved]
  - Mucous membrane disorder [Recovering/Resolving]
  - Dry skin [Unknown]
  - Panic attack [Recovering/Resolving]
  - Thyroid function test abnormal [Unknown]
  - Nervousness [Recovering/Resolving]
  - Adrenal disorder [Unknown]
  - Restlessness [Not Recovered/Not Resolved]
  - Post-traumatic neck syndrome [Unknown]
  - Anxiety [Unknown]
  - Histamine intolerance [Unknown]
  - Overdose [Unknown]
  - Cardiac discomfort [Recovering/Resolving]
  - Drug intolerance [Unknown]
  - Asthenia [Unknown]
  - Depression [Unknown]

NARRATIVE: CASE EVENT DATE: 201807
